FAERS Safety Report 12644180 (Version 1)
Quarter: 2016Q3

REPORT INFORMATION
  Report Type: Spontaneous
  Country: US (occurrence: US)
  Receive Date: 20160811
  Receipt Date: 20160811
  Transmission Date: 20161109
  Serious: Yes (Other)
  Sender: FDA-Public Use
  Company Number: US-MEDA-2016080003

PATIENT
  Sex: Male
  Weight: 85 kg

DRUGS (3)
  1. HYDROCODONE/IBUPROFEN [Suspect]
     Active Substance: HYDROCODONE\IBUPROFEN
     Indication: PAIN
     Route: 048
     Dates: start: 2012
  2. SOMA [Suspect]
     Active Substance: CARISOPRODOL
     Indication: PAIN
     Route: 048
     Dates: start: 2012
  3. FENTANYL. [Suspect]
     Active Substance: FENTANYL
     Indication: PAIN
     Route: 061
     Dates: start: 2012

REACTIONS (2)
  - Spinal operation [Unknown]
  - Erectile dysfunction [Not Recovered/Not Resolved]
